FAERS Safety Report 5615955-7 (Version None)
Quarter: 2008Q1

REPORT INFORMATION
  Report Type: 
  Country: None (occurrence: None)
  Receive Date: 20080206
  Receipt Date: 20080130
  Transmission Date: 20080703
  Serious: Yes (Other)
  Sender: FDA-Public Use
  Company Number: US-BOEHRINGER INGELHEIM GMBH, GERMANY-2008-DE-00610GD

PATIENT
  Age: 42 Year
  Sex: Male

DRUGS (2)
  1. PREDNISONE TAB [Suspect]
     Indication: ASTHMA
     Dosage: UP TO 40 MG
     Route: 048
  2. PREDNISONE TAB [Suspect]
     Indication: BRONCHOPULMONARY ASPERGILLOSIS ALLERGIC

REACTIONS (2)
  - BRONCHOPULMONARY ASPERGILLOSIS ALLERGIC [None]
  - DRUG INEFFECTIVE [None]
